FAERS Safety Report 10458735 (Version 2)
Quarter: 2014Q4

REPORT INFORMATION
  Report Type: Report from Study
  Country: CA (occurrence: CA)
  Receive Date: 20140917
  Receipt Date: 20141007
  Transmission Date: 20150528
  Serious: Yes (Other)
  Sender: FDA-Public Use
  Company Number: CA-JNJFOC-20140912210

PATIENT
  Age: 61 Year
  Sex: Female
  Weight: 77.11 kg

DRUGS (2)
  1. REMICADE [Suspect]
     Active Substance: INFLIXIMAB
     Indication: CHORIORETINITIS
     Route: 042
     Dates: start: 20140721
  2. REMICADE [Suspect]
     Active Substance: INFLIXIMAB
     Indication: CHORIORETINITIS
     Route: 042
     Dates: start: 201106

REACTIONS (4)
  - Foot fracture [Unknown]
  - Product use issue [Unknown]
  - Hypoaesthesia [Unknown]
  - Impaired healing [Unknown]

NARRATIVE: CASE EVENT DATE: 201106
